FAERS Safety Report 8470934-X (Version None)
Quarter: 2012Q2

REPORT INFORMATION
  Report Type: 
  Country: None (occurrence: None)
  Receive Date: 20120620
  Receipt Date: 20120604
  Transmission Date: 20120825
  Serious: Yes (Other)
  Sender: FDA-Public Use
  Company Number: 2012MA007052

PATIENT
  Age: 8 Year
  Sex: Female
  Weight: 54.5 kg

DRUGS (3)
  1. VALPROIC ACID [Concomitant]
  2. ZONISAMIDE [Concomitant]
  3. CARBAMAZEPINE [Suspect]
     Indication: EPILEPSY
     Dosage: 300 MG;QD;

REACTIONS (1)
  - DRUG INEFFECTIVE [None]
